FAERS Safety Report 8608569-8 (Version None)
Quarter: 2012Q3

REPORT INFORMATION
  Report Type: 
  Country: None (occurrence: None)
  Receive Date: 20120809
  Receipt Date: 20120809
  Transmission Date: 20120928
  Serious: Yes (Other)
  Sender: FDA-Public Use
  Company Number: None

PATIENT
  Age: 52 Year
  Sex: Female
  Weight: 72.5755 kg

DRUGS (2)
  1. LASTACAFT [Suspect]
  2. LASTACAFT [Suspect]
     Indication: HYPERSENSITIVITY
     Dosage: 1 DROP 1/DAY OPHTHALMIC
     Route: 047
     Dates: start: 20120323, end: 20120806

REACTIONS (2)
  - OCULAR HYPERAEMIA [None]
  - EYE IRRITATION [None]
